FAERS Safety Report 4675297-3 (Version None)
Quarter: 2005Q2

REPORT INFORMATION
  Report Type: 
  Country: None (occurrence: None)
  Receive Date: 20050527
  Receipt Date: 20050518
  Transmission Date: 20051028
  Serious: Yes (Death)
  Sender: FDA-Public Use
  Company Number: 200514816GDDC

PATIENT
  Age: 61 Year
  Sex: Male

DRUGS (3)
  1. TAXOTERE [Suspect]
     Indication: NON-HODGKIN'S LYMPHOMA
     Dosage: DOSE: UNK
     Route: 042
     Dates: start: 20030901
  2. MELPHALAN [Suspect]
     Indication: NON-HODGKIN'S LYMPHOMA
     Dosage: DOSE: UNK
  3. CARBOPLATIN [Suspect]
     Indication: NON-HODGKIN'S LYMPHOMA
     Dosage: DOSE: UNK

REACTIONS (22)
  - ARTHRALGIA [None]
  - ATRIAL FIBRILLATION [None]
  - ATRIAL FLUTTER [None]
  - COLITIS [None]
  - CYTOMEGALOVIRUS COLITIS [None]
  - DIFFUSE ALVEOLAR DAMAGE [None]
  - DISSEMINATED INTRAVASCULAR COAGULATION [None]
  - DRUG RESISTANCE [None]
  - DRUG TOXICITY [None]
  - GASTROINTESTINAL EROSION [None]
  - GASTROINTESTINAL HAEMORRHAGE [None]
  - HAEMODIALYSIS [None]
  - HEPATITIS [None]
  - INFARCTION [None]
  - LUNG INFECTION PSEUDOMONAL [None]
  - MUCOSAL INFLAMMATION [None]
  - RENAL FAILURE ACUTE [None]
  - RENAL TUBULAR NECROSIS [None]
  - SEPSIS [None]
  - SKIN REACTION [None]
  - SPLEEN DISORDER [None]
  - STOMATITIS [None]
